FAERS Safety Report 5597061-3 (Version None)
Quarter: 2008Q1

REPORT INFORMATION
  Report Type: 
  Country: None (occurrence: None)
  Receive Date: 20080121
  Receipt Date: 20080110
  Transmission Date: 20080703
  Serious: Yes (Hospitalization, Other)
  Sender: FDA-Public Use
  Company Number: CH-WYE-G00418607

PATIENT
  Age: 29 Year
  Sex: Female

DRUGS (7)
  1. EFFEXOR [Suspect]
     Route: 048
     Dates: start: 20070824, end: 20070827
  2. LAMICTAL [Concomitant]
     Dosage: 200 MG PER DAY
     Route: 048
     Dates: start: 20070704
  3. ABILIFY [Suspect]
     Dosage: 15 MG PER DAY
     Route: 048
     Dates: start: 20070705
  4. REMERON [Suspect]
     Dosage: 45 MG PER DAY
     Route: 048
     Dates: start: 20070704
  5. STILNOX [Concomitant]
     Dosage: 12.5 MG PER DAY
     Route: 048
     Dates: start: 20070704
  6. ANAFRANIL [Suspect]
     Dosage: 150 MG PER DAY
     Route: 048
     Dates: start: 20070814
  7. LITHIOFOR [Concomitant]
     Dosage: 1320 MG PER DAY
     Route: 048
     Dates: start: 20070704

REACTIONS (2)
  - C-REACTIVE PROTEIN INCREASED [None]
  - CONSTIPATION [None]
